FAERS Safety Report 12291703 (Version 1)
Quarter: 2016Q2

REPORT INFORMATION
  Report Type: Spontaneous
  Country: FR (occurrence: FR)
  Receive Date: 20160421
  Receipt Date: 20160421
  Transmission Date: 20160815
  Serious: Yes (Hospitalization, Other)
  Sender: FDA-Public Use
  Company Number: FR-ASTRAZENECA-2016SE40071

PATIENT
  Age: 689 Month
  Sex: Male

DRUGS (6)
  1. BACLOFEN. [Concomitant]
     Active Substance: BACLOFEN
  2. SERESTA [Concomitant]
     Active Substance: OXAZEPAM
  3. INEXIUM [Suspect]
     Active Substance: ESOMEPRAZOLE
     Indication: GASTROOESOPHAGEAL REFLUX DISEASE
     Route: 048
  4. INEXIUM [Suspect]
     Active Substance: ESOMEPRAZOLE
     Indication: GASTROOESOPHAGEAL REFLUX DISEASE
     Route: 048
  5. RANITIDINE. [Concomitant]
     Active Substance: RANITIDINE
  6. DIFFU-K [Concomitant]
     Active Substance: POTASSIUM CHLORIDE

REACTIONS (11)
  - Metabolic acidosis [Unknown]
  - Hypocalcaemia [Unknown]
  - Blood phosphorus increased [Unknown]
  - Hypomagnesaemia [Unknown]
  - Hypochloraemia [Unknown]
  - Hypokalaemia [Unknown]
  - Weight decreased [Unknown]
  - Nausea [Unknown]
  - Gastrointestinal disorder [Unknown]
  - Diarrhoea [Unknown]
  - Vomiting [Unknown]

NARRATIVE: CASE EVENT DATE: 201511
